FAERS Safety Report 12447074 (Version 1)
Quarter: 2016Q2

REPORT INFORMATION
  Report Type: Spontaneous
  Country: US (occurrence: US)
  Receive Date: 20160608
  Receipt Date: 20160608
  Transmission Date: 20160815
  Serious: Yes (Other)
  Sender: FDA-Public Use
  Company Number: US-MDT-ADR-2016-00341

PATIENT
  Age: 56 Year
  Sex: Female

DRUGS (2)
  1. LIORESAL [Suspect]
     Active Substance: BACLOFEN
     Dosage: 340.5 MCG/DAY
  2. LIORESAL [Suspect]
     Active Substance: BACLOFEN
     Dosage: 309.5 MCG/DAY
     Route: 037

REACTIONS (6)
  - Discomfort [Recovered/Resolved]
  - Pain [Recovered/Resolved]
  - Seizure [Recovered/Resolved]
  - Musculoskeletal stiffness [Recovered/Resolved]
  - Mental status changes [Recovered/Resolved]
  - Urinary tract infection [Recovered/Resolved]

NARRATIVE: CASE EVENT DATE: 20160217
